FAERS Safety Report 5370224-8 (Version None)
Quarter: 2007Q2

REPORT INFORMATION
  Report Type: 
  Country: None (occurrence: None)
  Receive Date: 20070626
  Receipt Date: 20070618
  Transmission Date: 20071010
  Serious: Yes (Other)
  Sender: FDA-Public Use
  Company Number: US-AMGEN-STX225848

PATIENT
  Sex: Female
  Weight: 68.1 kg

DRUGS (19)
  1. ENBREL [Suspect]
     Indication: RHEUMATOID ARTHRITIS
     Route: 058
     Dates: start: 20070124
  2. METHOTREXATE [Concomitant]
     Route: 065
     Dates: start: 19970101
  3. CELEBREX [Concomitant]
     Dates: start: 20060524
  4. FOLIC ACID [Concomitant]
     Dates: start: 20060524
  5. POTASSIUM ACETATE [Concomitant]
     Dates: start: 20060524
  6. SINGULAIR [Concomitant]
     Dates: start: 20060524
  7. ALBUTEROL [Concomitant]
     Dates: start: 20060524
  8. FLOVENT [Concomitant]
     Dates: start: 20060524
  9. GLYBURIDE [Concomitant]
     Dates: start: 20060524
  10. FUROSEMIDE [Concomitant]
     Dates: start: 20060524
  11. SYNTHROID [Concomitant]
     Dates: start: 20060524
  12. FERROUS SULFATE [Concomitant]
     Dates: start: 20060524
  13. CALCIUM WITH VITAMIN D [Concomitant]
     Dates: start: 20060524
  14. MULTIVITAMIN [Concomitant]
     Dates: start: 20060524
  15. VICODIN [Concomitant]
  16. ACTONEL [Concomitant]
     Dates: start: 20060524
  17. OMEPRAZOLE [Concomitant]
     Dates: start: 20070124
  18. PREDNISONE TAB [Concomitant]
  19. METHENAMINE MANDELATE [Concomitant]

REACTIONS (7)
  - CHOROIDAL NEOVASCULARISATION [None]
  - COLONIC POLYP [None]
  - GASTRITIS EROSIVE [None]
  - MACULAR DEGENERATION [None]
  - RASH [None]
  - RHEUMATOID ARTHRITIS [None]
  - SWELLING [None]
